FAERS Safety Report 4951034-X (Version None)
Quarter: 2006Q1

REPORT INFORMATION
  Report Type: 
  Country: None (occurrence: None)
  Receive Date: 20060313
  Receipt Date: 20060228
  Transmission Date: 20060701
  Serious: Yes (Life-Threatening)
  Sender: FDA-Public Use
  Company Number: 2006P1000106

PATIENT
  Age: 77 Year
  Sex: Male
  Weight: 100 kg

DRUGS (14)
  1. RETEPLASE (RETEPLASE) [Suspect]
     Indication: ACUTE MYOCARDIAL INFARCTION
     Dosage: IV
     Route: 042
     Dates: start: 20050302
  2. ABCIXIMAB (ABCIXIMAB) [Suspect]
     Indication: ACUTE MYOCARDIAL INFARCTION
     Dosage: IV
     Route: 042
     Dates: start: 20050302, end: 20050302
  3. OMEPRAZOLE [Concomitant]
  4. ASPIRIN [Concomitant]
  5. CAPTOPRIL [Concomitant]
  6. SIMVASTATIN [Concomitant]
  7. ISOSORBIDE MONONITRATE [Concomitant]
  8. MOLSIDOMINE [Concomitant]
  9. TRIMETAZIDINE [Concomitant]
  10. BISOPROLOL [Concomitant]
  11. POTASSIUM [Concomitant]
  12. GLICLAZIDE [Concomitant]
  13. AMILORIDE HCL [Concomitant]
  14. HYDROCHLOROTHIAZIDE [Concomitant]

REACTIONS (17)
  - ANGINA PECTORIS [None]
  - ANGINA UNSTABLE [None]
  - AORTIC ARTERIOSCLEROSIS [None]
  - ATRIAL FIBRILLATION [None]
  - ATRIOVENTRICULAR BLOCK SECOND DEGREE [None]
  - BEDRIDDEN [None]
  - CHEST X-RAY ABNORMAL [None]
  - DILATATION VENTRICULAR [None]
  - DYSAESTHESIA [None]
  - FAECAL INCONTINENCE [None]
  - GAZE PALSY [None]
  - HAEMATEMESIS [None]
  - HEMIPLEGIA [None]
  - ISCHAEMIC STROKE [None]
  - PARALYSIS [None]
  - PYRAMIDAL TRACT SYNDROME [None]
  - SKIN CANCER [None]
